FAERS Safety Report 14787746 (Version 3)
Quarter: 2019Q1

REPORT INFORMATION
  Report Type: Spontaneous
  Country: US (occurrence: US)
  Receive Date: 20180421
  Receipt Date: 20190116
  Transmission Date: 20190417
  Serious: No
  Sender: FDA-Public Use
  Company Number: US-JNJFOC-20180409361

PATIENT
  Age: 82 Year
  Sex: Male

DRUGS (3)
  1. EPLERENONE. [Concomitant]
     Active Substance: EPLERENONE
     Route: 065
  2. ZYTIGA [Suspect]
     Active Substance: ABIRATERONE ACETATE
     Indication: PROSTATE CANCER
     Dosage: 4 PILLS
     Route: 048
     Dates: start: 2017
  3. PROVENGE [Concomitant]
     Active Substance: SIPULEUCEL-T
     Indication: PROSTATE CANCER
     Route: 065
     Dates: start: 2017

REACTIONS (10)
  - Product administration error [Unknown]
  - Alanine aminotransferase abnormal [Unknown]
  - Arthropathy [Not Recovered/Not Resolved]
  - Aspartate aminotransferase abnormal [Unknown]
  - Prostatic specific antigen abnormal [Unknown]
  - Feeling abnormal [Unknown]
  - Hypertension [Unknown]
  - Adverse drug reaction [Unknown]
  - Drug ineffective [Unknown]
  - Eye infection [Unknown]

NARRATIVE: CASE EVENT DATE: 2017
